FAERS Safety Report 8360368-0 (Version None)
Quarter: 2012Q2

REPORT INFORMATION
  Report Type: 
  Country: None (occurrence: None)
  Receive Date: 20120515
  Receipt Date: 20120502
  Transmission Date: 20120825
  Serious: Yes (Hospitalization)
  Sender: FDA-Public Use
  Company Number: CN-SANOFI-AVENTIS-2012SA031300

PATIENT
  Age: 65 Year
  Sex: Female

DRUGS (5)
  1. DIGOXIN [Suspect]
     Route: 048
     Dates: start: 20080501, end: 20100701
  2. FUROSEMIDE [Suspect]
  3. DIGOXIN [Suspect]
     Route: 048
     Dates: start: 20100701, end: 20100929
  4. SPIRONOLACTONE [Suspect]
     Route: 065
  5. DIGOXIN [Suspect]
     Route: 048
     Dates: start: 20101008

REACTIONS (15)
  - POOR QUALITY SLEEP [None]
  - ANXIETY [None]
  - ASTHENIA [None]
  - BLOOD POTASSIUM DECREASED [None]
  - PSYCHIATRIC SYMPTOM [None]
  - NAUSEA [None]
  - VOMITING [None]
  - DYSPNOEA [None]
  - PRODUCTIVE COUGH [None]
  - MENTAL STATUS CHANGES [None]
  - CHEST PAIN [None]
  - TOXICITY TO VARIOUS AGENTS [None]
  - MALAISE [None]
  - CONDITION AGGRAVATED [None]
  - DECREASED APPETITE [None]
